FAERS Safety Report 6112573-1 (Version None)
Quarter: 2009Q1

REPORT INFORMATION
  Report Type: 
  Country: None (occurrence: None)
  Receive Date: 20090312
  Receipt Date: 20090303
  Transmission Date: 20090719
  Serious: Yes (Other)
  Sender: FDA-Public Use
  Company Number: US-JNJFOC-20090301098

PATIENT
  Sex: Male

DRUGS (2)
  1. REMICADE [Suspect]
     Dosage: INFUSION AT WEEK 2 ON UNKNOWN DATE
     Route: 042
  2. REMICADE [Suspect]
     Indication: CROHN'S DISEASE
     Route: 042

REACTIONS (2)
  - GINGIVAL BLEEDING [None]
  - PETECHIAE [None]
